FAERS Safety Report 8948262 (Version 1)
Quarter: 2012Q4

REPORT INFORMATION
  Report Type: Spontaneous
  Country: US (occurrence: None)
  Receive Date: 20121206
  Receipt Date: 20121206
  Transmission Date: 20130627
  Serious: No
  Sender: FDA-Public Use
  Company Number: None

PATIENT
  Age: 72 Year
  Sex: Female
  Weight: 77.11 kg

DRUGS (3)
  1. METHYLPREDNISOLONE ACETATE [Suspect]
     Indication: LUMBAR SPINAL STENOSIS
     Dosage: 80mg PRN Epidural
     Route: 008
     Dates: start: 20120717, end: 20120926
  2. METHYLPREDNISOLONE ACETATE [Suspect]
     Indication: LUMBAR SPONDYLOSIS
     Dosage: 80mg PRN Epidural
     Route: 008
     Dates: start: 20120717, end: 20120926
  3. METHYLPREDNISOLONE ACETATE [Suspect]
     Indication: ARTHROSIS
     Dosage: 80mg PRN Epidural
     Route: 008
     Dates: start: 20120717, end: 20120926

REACTIONS (4)
  - Dizziness [None]
  - Malaise [None]
  - Back pain [None]
  - Bronchitis [None]
